FAERS Safety Report 9562302 (Version 5)
Quarter: 2014Q4

REPORT INFORMATION
  Report Type: Report from Study
  Country: TH (occurrence: TH)
  Receive Date: 20130927
  Receipt Date: 20141124
  Transmission Date: 20150529
  Serious: Yes (Hospitalization, Other)
  Sender: FDA-Public Use
  Company Number: TH-GLAXOSMITHKLINE-Z0021235B

PATIENT
  Age: 61 Year
  Sex: Male
  Weight: 57 kg

DRUGS (8)
  1. OFATUMUMAB [Suspect]
     Active Substance: OFATUMUMAB
     Indication: DIFFUSE LARGE B-CELL LYMPHOMA REFRACTORY
  2. DEXAMETHASONE. [Suspect]
     Active Substance: DEXAMETHASONE
     Indication: DIFFUSE LARGE B-CELL LYMPHOMA REFRACTORY
  3. CISPLATIN. [Suspect]
     Active Substance: CISPLATIN
     Indication: DIFFUSE LARGE B-CELL LYMPHOMA RECURRENT
     Dosage: 100 MG/M2, CYC
     Route: 042
     Dates: start: 20130911, end: 20130912
  4. CISPLATIN. [Suspect]
     Active Substance: CISPLATIN
     Indication: DIFFUSE LARGE B-CELL LYMPHOMA REFRACTORY
  5. CYTARABINE. [Suspect]
     Active Substance: CYTARABINE
     Indication: DIFFUSE LARGE B-CELL LYMPHOMA REFRACTORY
  6. DEXAMETHASONE. [Suspect]
     Active Substance: DEXAMETHASONE
     Indication: DIFFUSE LARGE B-CELL LYMPHOMA RECURRENT
     Dosage: 40 MG, CYC
     Route: 042
     Dates: start: 20130911
  7. OFATUMUMAB [Suspect]
     Active Substance: OFATUMUMAB
     Indication: DIFFUSE LARGE B-CELL LYMPHOMA RECURRENT
     Dosage: 1000 MG, CYC
     Route: 042
     Dates: start: 20130911, end: 20140918
  8. CYTARABINE. [Suspect]
     Active Substance: CYTARABINE
     Indication: DIFFUSE LARGE B-CELL LYMPHOMA RECURRENT
     Dosage: 2 UNK, CYC
     Route: 042
     Dates: start: 20130912

REACTIONS (2)
  - Blood creatinine increased [Recovered/Resolved]
  - Renal injury [Recovered/Resolved]

NARRATIVE: CASE EVENT DATE: 20130919
